FAERS Safety Report 5762806-6 (Version None)
Quarter: 2008Q2

REPORT INFORMATION
  Report Type: 
  Country: None (occurrence: None)
  Receive Date: 20080609
  Receipt Date: 20080604
  Transmission Date: 20081010
  Serious: Yes (Other)
  Sender: FDA-Public Use
  Company Number: GB-ABBOTT-08P-167-0453663-00

PATIENT
  Sex: Male

DRUGS (5)
  1. SEVOFLURANE [Suspect]
     Indication: ANAESTHESIA
     Route: 055
  2. LEVOBUPIVACAINE [Suspect]
     Indication: NERVE BLOCK
     Dosage: 0.5% 30 ML INJECTION
  3. FENTANYL [Suspect]
     Indication: ANAESTHESIA
  4. PROPOFOL [Suspect]
     Indication: ANAESTHESIA
  5. OXYGEN [Suspect]
     Indication: ANAESTHESIA
     Dosage: NOT REPORTED

REACTIONS (1)
  - MIGRAINE WITH AURA [None]
